FAERS Safety Report 9192102 (Version 2)
Quarter: 2013Q1

REPORT INFORMATION
  Report Type: Report from Study
  Country: GB (occurrence: GB)
  Receive Date: 20130327
  Receipt Date: 20130327
  Transmission Date: 20140127
  Serious: Yes (Hospitalization, Other)
  Sender: FDA-Public Use
  Company Number: GB-009507513-1104GBR00086

PATIENT
  Age: 70 Year
  Sex: Male

DRUGS (9)
  1. LAROPIPRANT\NIACIN [Suspect]
     Indication: HIGH DENSITY LIPOPROTEIN DECREASED
     Route: 048
     Dates: start: 20090608, end: 20101126
  2. LAROPIPRANT\NIACIN [Suspect]
     Route: 048
     Dates: start: 20110318, end: 20110322
  3. ZOCOR [Suspect]
     Indication: HYPERCHOLESTEROLAEMIA
     Dosage: 40 MG, QD
     Route: 048
     Dates: start: 20090126
  4. MK-9384 [Concomitant]
     Route: 048
  5. TERAZOSIN HYDROCHLORIDE [Concomitant]
  6. WARFARIN [Concomitant]
  7. FOSAMAX [Concomitant]
     Route: 048
  8. CALCIUM CARBONATE (+) CHOLECALCIFEROL [Concomitant]
     Dosage: 1.25/200IU
  9. FENTANYL [Concomitant]

REACTIONS (1)
  - Drug hypersensitivity [Recovered/Resolved]
